FAERS Safety Report 23924265 (Version 2)
Quarter: 2024Q3

REPORT INFORMATION
  Report Type: Spontaneous
  Country: SK (occurrence: None)
  Receive Date: 20240531
  Receipt Date: 20240702
  Transmission Date: 20241016
  Serious: Yes (Other)
  Sender: ASTRAZENECA
  Company Number: 2024A125229

PATIENT
  Age: 78 Year
  Sex: Male

DRUGS (2)
  1. CALQUENCE [Suspect]
     Active Substance: ACALABRUTINIB
     Indication: Chronic lymphocytic leukaemia
     Route: 048
     Dates: start: 20221025
  2. APIXABAN [Concomitant]
     Active Substance: APIXABAN
     Dates: start: 202305

REACTIONS (3)
  - Platelet disorder [Recovered/Resolved]
  - Contusion [Recovered/Resolved]
  - Haemorrhage [Recovered/Resolved]

NARRATIVE: CASE EVENT DATE: 20230301
